FAERS Safety Report 23033002 (Version 1)
Quarter: 2023Q4

REPORT INFORMATION
  Report Type: Spontaneous
  Country: GB (occurrence: GB)
  Receive Date: 20231005
  Receipt Date: 20231005
  Transmission Date: 20240110
  Serious: Yes (Disabling, Other)
  Sender: FDA-Public Use
  Company Number: GB-PERRIGO-23GB011428

PATIENT
  Sex: Female

DRUGS (2)
  1. LOPERAMIDE HYDROCHLORIDE [Suspect]
     Active Substance: LOPERAMIDE HYDROCHLORIDE
     Indication: Diarrhoea
     Dosage: TWO TABLETS THEN 1 AFTER EACH LOOSE BOWEL MOVEMENT
     Route: 065
     Dates: start: 20230912, end: 20230912
  2. OMEPRAZOLE [Concomitant]
     Active Substance: OMEPRAZOLE
     Indication: Gastritis
     Dosage: UNK

REACTIONS (9)
  - Paralysis [Unknown]
  - Confusional state [Unknown]
  - Feeling of despair [Unknown]
  - Insomnia [Unknown]
  - Presyncope [Unknown]
  - Panic reaction [Unknown]
  - Depressed level of consciousness [Unknown]
  - Fatigue [Unknown]
  - Coordination abnormal [Unknown]

NARRATIVE: CASE EVENT DATE: 20230912
